FAERS Safety Report 22333569 (Version 2)
Quarter: 2023Q2

REPORT INFORMATION
  Report Type: Report from Study
  Country: US (occurrence: US)
  Receive Date: 20230517
  Receipt Date: 20230519
  Transmission Date: 20230722
  Serious: No
  Sender: FDA-Public Use
  Company Number: US-002147023-NVSC2023US109994

PATIENT
  Sex: Female
  Weight: 88.435 kg

DRUGS (8)
  1. METRONIDAZOLE [Suspect]
     Active Substance: METRONIDAZOLE
     Indication: Psoriasis
     Dosage: UNK
     Route: 065
  2. METRONIDAZOLE [Suspect]
     Active Substance: METRONIDAZOLE
     Indication: Psoriatic arthropathy
  3. CLOBETASOL [Suspect]
     Active Substance: CLOBETASOL
     Indication: Psoriasis
     Dosage: UNK
     Route: 065
  4. CLOBETASOL [Suspect]
     Active Substance: CLOBETASOL
     Indication: Psoriatic arthropathy
  5. LIDOCAINE [Suspect]
     Active Substance: LIDOCAINE
     Indication: Psoriasis
     Dosage: 1 % (LIDO/W EPI, LIDOCAINE WITH EPINEPHRINE)
     Route: 065
  6. LIDOCAINE [Suspect]
     Active Substance: LIDOCAINE
     Indication: Psoriatic arthropathy
  7. SERTRALINE [Suspect]
     Active Substance: SERTRALINE HYDROCHLORIDE
     Indication: Psoriasis
     Dosage: UNK
     Route: 065
  8. SERTRALINE [Suspect]
     Active Substance: SERTRALINE HYDROCHLORIDE
     Indication: Psoriatic arthropathy

REACTIONS (8)
  - Dry skin [Unknown]
  - Neoplasm skin [Unknown]
  - Melanocytic naevus [Unknown]
  - Macule [Unknown]
  - Papule [Unknown]
  - Arthralgia [Unknown]
  - Psoriasis [Unknown]
  - Drug ineffective [Unknown]
